FAERS Safety Report 19290208 (Version 1)
Quarter: 2021Q2

REPORT INFORMATION
  Report Type: Spontaneous
  Country: US (occurrence: US)
  Receive Date: 20210521
  Receipt Date: 20210521
  Transmission Date: 20210717
  Serious: No
  Sender: FDA-Public Use
  Company Number: US-RADIUS HEALTH INC.-2021US000608

PATIENT
  Age: 81 Year
  Sex: Female

DRUGS (2)
  1. TYMLOS [Suspect]
     Active Substance: ABALOPARATIDE
     Indication: OSTEOPOROSIS
     Dosage: 80 MCG, DAILY
     Route: 058
     Dates: start: 20201029
  2. TYMLOS [Suspect]
     Active Substance: ABALOPARATIDE
     Dosage: 40 MCG, DAILY
     Route: 058
     Dates: start: 202012, end: 20201231

REACTIONS (4)
  - Palpitations [Not Recovered/Not Resolved]
  - Incorrect route of product administration [Unknown]
  - Off label use [Recovered/Resolved]
  - Anxiety [Not Recovered/Not Resolved]

NARRATIVE: CASE EVENT DATE: 202011
